FAERS Safety Report 22884126 (Version 2)
Quarter: 2023Q4

REPORT INFORMATION
  Report Type: Spontaneous
  Country: SE (occurrence: SE)
  Receive Date: 20230830
  Receipt Date: 20231128
  Transmission Date: 20240109
  Serious: Yes (Other)
  Sender: FDA-Public Use
  Company Number: None

PATIENT
  Age: 72 Year
  Sex: Female
  Weight: 49 kg

DRUGS (4)
  1. TOBI [Suspect]
     Active Substance: TOBRAMYCIN
     Indication: Pneumonia
     Dosage: 5 ML, BID, 28 DAY COURSE, 28 DAY BREAK
     Route: 055
     Dates: start: 20230102, end: 20230129
  2. ALBUTEROL SULFATE [Concomitant]
     Active Substance: ALBUTEROL SULFATE
     Indication: Product used for unknown indication
     Dosage: UNK, PRN
     Route: 065
  3. COMBIVENT [Concomitant]
     Active Substance: ALBUTEROL SULFATE\IPRATROPIUM BROMIDE
     Indication: Product used for unknown indication
     Dosage: 2-3 TIMES DAILY
     Route: 065
  4. SINGULAIR [Concomitant]
     Active Substance: MONTELUKAST SODIUM
     Indication: Product used for unknown indication
     Dosage: 1 MG, QD
     Route: 065

REACTIONS (1)
  - Hypoacusis [Recovering/Resolving]

NARRATIVE: CASE EVENT DATE: 20230130
